FAERS Safety Report 5838842-8 (Version None)
Quarter: 2008Q3

REPORT INFORMATION
  Report Type: 
  Country: None (occurrence: None)
  Receive Date: 20080808
  Receipt Date: 20080731
  Transmission Date: 20090109
  Serious: Yes (Other)
  Sender: FDA-Public Use
  Company Number: JP-ABBOTT-08P-087-0453258-00

PATIENT
  Sex: Male

DRUGS (3)
  1. LEUPLIN FOR INJECTION KIT 3.75 MG [Suspect]
     Indication: PROSTATE CANCER
     Route: 058
     Dates: start: 20080327, end: 20080424
  2. LEUPLIN FOR INJECTION KIT 3.75 MG [Suspect]
     Indication: METASTASES TO LUNG
  3. CHLORMADINONE ACETATE TAB [Concomitant]
     Indication: PROSTATE CANCER
     Route: 048
     Dates: start: 20080327, end: 20080424

REACTIONS (3)
  - ALANINE AMINOTRANSFERASE INCREASED [None]
  - ASPARTATE AMINOTRANSFERASE INCREASED [None]
  - HEPATIC FUNCTION ABNORMAL [None]
